FAERS Safety Report 11067860 (Version 1)
Quarter: 2015Q2

REPORT INFORMATION
  Report Type: Spontaneous
  Country: US (occurrence: US)
  Receive Date: 20150427
  Receipt Date: 20150427
  Transmission Date: 20150821
  Serious: No
  Sender: FDA-Public Use
  Company Number: US-ASTRAZENECA-2014SE64899

PATIENT
  Age: 67 Year
  Sex: Female
  Weight: 93.4 kg

DRUGS (2)
  1. BYETTA [Suspect]
     Active Substance: EXENATIDE
     Indication: TYPE 2 DIABETES MELLITUS
     Route: 058
     Dates: start: 2013
  2. BYETTA [Suspect]
     Active Substance: EXENATIDE
     Indication: TYPE 2 DIABETES MELLITUS
     Dosage: 250 MCG / 2.4 ML PEN, 2.4 ML, (10 MCG ) BID
     Route: 058
     Dates: start: 2008

REACTIONS (4)
  - Blood glucose increased [Recovered/Resolved]
  - Underdose [Recovered/Resolved with Sequelae]
  - Drug administration error [Recovered/Resolved]
  - Drug dose omission [Recovered/Resolved]

NARRATIVE: CASE EVENT DATE: 2008
